FAERS Safety Report 15352455 (Version 1)
Quarter: 2018Q3

REPORT INFORMATION
  Report Type: Spontaneous
  Country: FR (occurrence: FR)
  Receive Date: 20180905
  Receipt Date: 20180905
  Transmission Date: 20181010
  Serious: Yes (Hospitalization, Other)
  Sender: FDA-Public Use
  Company Number: FR-GLAXOSMITHKLINE-FR2018157352

PATIENT
  Age: 73 Year
  Sex: Female

DRUGS (3)
  1. AUGMENTIN [Suspect]
     Active Substance: AMOXICILLIN\CLAVULANATE POTASSIUM
     Indication: BRONCHITIS
     Dosage: UNK
     Route: 048
     Dates: start: 20180707, end: 20180722
  2. RULID [Suspect]
     Active Substance: ROXITHROMYCIN
     Indication: BRONCHITIS
     Dosage: UNK
     Route: 048
     Dates: start: 20170629, end: 20180706
  3. FLIXOTIDE [Suspect]
     Active Substance: FLUTICASONE PROPIONATE
     Indication: BRONCHITIS
     Dosage: UNK
     Route: 055
     Dates: start: 20180707, end: 20180722

REACTIONS (1)
  - Febrile bone marrow aplasia [Recovered/Resolved]

NARRATIVE: CASE EVENT DATE: 20180723
